FAERS Safety Report 24721483 (Version 1)
Quarter: 2024Q4

REPORT INFORMATION
  Report Type: Other
  Country: BG (occurrence: BG)
  Receive Date: 20241211
  Receipt Date: 20241211
  Transmission Date: 20250114
  Serious: Yes (Death)
  Sender: B BRAUN
  Company Number: BG-B.Braun Medical Inc.-2166868

PATIENT
  Age: 42 Year
  Sex: Male

DRUGS (12)
  1. METRONIDAZOLE [Suspect]
     Active Substance: METRONIDAZOLE
     Indication: Sinusitis
  2. ROCEPHIN [Suspect]
     Active Substance: CEFTRIAXONE SODIUM
  3. DIETARY SUPPLEMENT\HERBALS\MILK THISTLE [Suspect]
     Active Substance: MILK THISTLE
  4. ADEMETIONINE BUTANEDISULFONATE [Suspect]
     Active Substance: ADEMETIONINE BUTANEDISULFONATE
  5. FAMOTIDINE [Suspect]
     Active Substance: FAMOTIDINE
  6. FILGRASTIM [Suspect]
     Active Substance: FILGRASTIM
  7. DEXAMETHASONE [Suspect]
     Active Substance: DEXAMETHASONE
  8. ITRACONAZOLE [Suspect]
     Active Substance: ITRACONAZOLE
  9. VALACYCLOVIR [Suspect]
     Active Substance: VALACYCLOVIR HYDROCHLORIDE
  10. VANCOCIN [Suspect]
     Active Substance: VANCOMYCIN HYDROCHLORIDE
  11. MEROPENEM [Suspect]
     Active Substance: MEROPENEM
  12. AMIKACIN [Suspect]
     Active Substance: AMIKACIN

REACTIONS (1)
  - Drug ineffective [Fatal]
